FAERS Safety Report 6854823-X (Version None)
Quarter: 2010Q3

REPORT INFORMATION
  Report Type: 
  Country: None (occurrence: None)
  Receive Date: 20100717
  Receipt Date: 20080325
  Transmission Date: 20110219
  Serious: Yes (Other)
  Sender: FDA-Public Use
  Company Number: US-PFIZER INC-2008004001

PATIENT
  Age: 44 Year
  Sex: Male

DRUGS (4)
  1. CHANTIX [Suspect]
     Indication: SMOKING CESSATION THERAPY
     Dates: start: 20070101
  2. STRATTERA [Interacting]
     Indication: ATTENTION DEFICIT/HYPERACTIVITY DISORDER
  3. RITALIN [Interacting]
     Indication: ATTENTION DEFICIT/HYPERACTIVITY DISORDER
  4. REQUIP [Concomitant]

REACTIONS (3)
  - ATTENTION DEFICIT/HYPERACTIVITY DISORDER [None]
  - DRUG INTERACTION [None]
  - PERFORMANCE STATUS DECREASED [None]
